FAERS Safety Report 7249983-5 (Version None)
Quarter: 2011Q1

REPORT INFORMATION
  Report Type: 
  Country: None (occurrence: None)
  Receive Date: 20110128
  Receipt Date: 20110119
  Transmission Date: 20110831
  Serious: Yes (Other)
  Sender: FDA-Public Use
  Company Number: US-JNJFOC-20101208318

PATIENT
  Sex: Male

DRUGS (5)
  1. ASA [Concomitant]
  2. METOPROLOL [Concomitant]
  3. REMICADE [Suspect]
     Indication: CROHN'S DISEASE
     Route: 042
  4. PPI [Concomitant]
  5. LIPITOR [Concomitant]

REACTIONS (3)
  - LUNG NEOPLASM [None]
  - DYSPNOEA [None]
  - CHEST DISCOMFORT [None]
